FAERS Safety Report 8294579-X (Version None)
Quarter: 2012Q2

REPORT INFORMATION
  Report Type: 
  Country: None (occurrence: None)
  Receive Date: 20120418
  Receipt Date: 20120410
  Transmission Date: 20120825
  Serious: Yes (Life-Threatening, Hospitalization)
  Sender: FDA-Public Use
  Company Number: US-ACTELION-A-NJ2012-59388

PATIENT

DRUGS (14)
  1. LASIX [Concomitant]
  2. ASCORBIC ACID [Concomitant]
  3. POTASSIUM [Concomitant]
  4. TRACLEER [Suspect]
     Indication: PULMONARY ARTERIAL HYPERTENSION
     Dosage: 125 MG, BID
     Route: 048
     Dates: start: 20110113
  5. ASPIRIN [Concomitant]
  6. MAGNESIUM OXIDE [Concomitant]
  7. PREDNISONE TAB [Concomitant]
  8. VITAMIN E [Concomitant]
  9. CALCIUM CARBONATE [Concomitant]
  10. OXYGEN [Concomitant]
  11. ALDACTONE [Concomitant]
  12. BROVANA [Concomitant]
  13. SPIRIVA [Concomitant]
  14. MULTI-VITAMIN [Concomitant]

REACTIONS (15)
  - GASTROENTERITIS VIRAL [None]
  - LOWER GASTROINTESTINAL HAEMORRHAGE [None]
  - RESPIRATORY RATE DECREASED [None]
  - PAIN IN EXTREMITY [None]
  - ANAEMIA [None]
  - OESOPHAGEAL CANDIDIASIS [None]
  - DIARRHOEA [None]
  - COELIAC DISEASE [None]
  - FLUID OVERLOAD [None]
  - HAEMORRHAGE [None]
  - CHRONIC OBSTRUCTIVE PULMONARY DISEASE [None]
  - DYSPNOEA [None]
  - OEDEMA PERIPHERAL [None]
  - TRANSFUSION [None]
  - ACUTE RESPIRATORY FAILURE [None]
